FAERS Safety Report 8914002 (Version 1)
Quarter: 2012Q4

REPORT INFORMATION
  Report Type: Spontaneous
  Country: US (occurrence: None)
  Receive Date: 20121115
  Receipt Date: 20121115
  Transmission Date: 20130627
  Serious: Yes (Disabling, Other)
  Sender: FDA-Public Use
  Company Number: None

PATIENT
  Age: 59 Year
  Sex: Female
  Weight: 62.6 kg

DRUGS (1)
  1. PROLIA [Suspect]
     Indication: OSTEOPOROSIS
     Dosage: twice a year   Cutaneous
     Route: 003
     Dates: start: 20120620, end: 20120620

REACTIONS (10)
  - Fatigue [None]
  - Lethargy [None]
  - Arthralgia [None]
  - Urinary tract infection [None]
  - Myalgia [None]
  - Arthralgia [None]
  - Musculoskeletal pain [None]
  - Muscular weakness [None]
  - Movement disorder [None]
  - Insomnia [None]
